FAERS Safety Report 23928796 (Version 1)
Quarter: 2024Q2

REPORT INFORMATION
  Report Type: Spontaneous
  Country: US (occurrence: US)
  Receive Date: 20240531
  Receipt Date: 20240531
  Transmission Date: 20240716
  Serious: No
  Sender: FDA-Public Use
  Company Number: US-RADIUS HEALTH INC.-2024US001701

PATIENT
  Age: 68 Year
  Sex: Female

DRUGS (2)
  1. TYMLOS [Suspect]
     Active Substance: ABALOPARATIDE
     Indication: Osteoarthritis
     Dosage: UNK
     Route: 065
     Dates: start: 20240302
  2. OLSALAZINE [Concomitant]
     Active Substance: OLSALAZINE
     Indication: Colitis ulcerative

REACTIONS (3)
  - Colitis ulcerative [Not Recovered/Not Resolved]
  - Headache [Recovered/Resolved]
  - Product use in unapproved indication [Not Recovered/Not Resolved]

NARRATIVE: CASE EVENT DATE: 20240302
